FAERS Safety Report 8158893-0 (Version None)
Quarter: 2012Q1

REPORT INFORMATION
  Report Type: 
  Country: None (occurrence: None)
  Receive Date: 20120217
  Receipt Date: 20120206
  Transmission Date: 20120608
  Serious: Yes (Hospitalization)
  Sender: FDA-Public Use
  Company Number: 2012MA001718

PATIENT
  Age: 74 Year
  Sex: Male

DRUGS (6)
  1. VENLAFAXINE HCL [Suspect]
  2. DIAZEPAM [Suspect]
  3. PROPRANOLOL HCL [Suspect]
  4. ZOLPIDEM TARTRATE [Suspect]
  5. LANSOPRAZOLE [Suspect]
  6. TELMISARTAN AND HYDROCHLOROTHIAZIDE [Suspect]

REACTIONS (10)
  - RESPIRATORY ALKALOSIS [None]
  - VIITH NERVE PARALYSIS [None]
  - HYPERTONIA [None]
  - BLOOD PRESSURE INCREASED [None]
  - INAPPROPRIATE ANTIDIURETIC HORMONE SECRETION [None]
  - EXTENSOR PLANTAR RESPONSE [None]
  - DYSARTHRIA [None]
  - GAIT DISTURBANCE [None]
  - MOVEMENT DISORDER [None]
  - AREFLEXIA [None]
